FAERS Safety Report 23888335 (Version 1)
Quarter: 2024Q2

REPORT INFORMATION
  Report Type: Spontaneous
  Country: US (occurrence: US)
  Receive Date: 20240523
  Receipt Date: 20240523
  Transmission Date: 20240715
  Serious: Yes (Other)
  Sender: FDA-Public Use
  Company Number: US-Calliditas-2024CAL00785

PATIENT

DRUGS (1)
  1. TARPEYO [Suspect]
     Active Substance: BUDESONIDE
     Indication: Product used for unknown indication
     Dates: start: 202310

REACTIONS (5)
  - Deep vein thrombosis [Unknown]
  - Visual impairment [Unknown]
  - Weight increased [Unknown]
  - Central serous chorioretinopathy [Unknown]
  - Oedema [Unknown]
